FAERS Safety Report 4945910-1 (Version None)
Quarter: 2006Q1

REPORT INFORMATION
  Report Type: 
  Country: None (occurrence: None)
  Receive Date: 20060117
  Receipt Date: 20050119
  Transmission Date: 20060701
  Serious: Yes (Hospitalization)
  Sender: FDA-Public Use
  Company Number: A03200500162

PATIENT
  Age: 83 Year
  Sex: Male
  Weight: 95.2554 kg

DRUGS (10)
  1. PLAVIX [Suspect]
     Indication: STENT PLACEMENT
     Dosage: 75 MG QD - ORAL
     Route: 048
     Dates: start: 20040623
  2. ACETYLSALICYLIC ACID SRT [Concomitant]
  3. SIMVASTATIN [Concomitant]
  4. GLYBURIDE [Concomitant]
  5. BUMETANIDE [Concomitant]
  6. POTASSIUM [Concomitant]
  7. FISH OIL [Concomitant]
  8. IRBESARTAN [Concomitant]
  9. VITAMIN [Concomitant]
  10. METOPROLOL [Concomitant]

REACTIONS (1)
  - HAEMOGLOBIN DECREASED [None]
